FAERS Safety Report 7914597-8 (Version None)
Quarter: 2011Q4

REPORT INFORMATION
  Report Type: 
  Country: None (occurrence: None)
  Receive Date: 20111115
  Receipt Date: 20111103
  Transmission Date: 20120403
  Serious: Yes (Other)
  Sender: FDA-Public Use
  Company Number: PHHY2011IT099183

PATIENT
  Age: 3 Year
  Sex: Female

DRUGS (1)
  1. CYCLOSPORINE [Suspect]
     Indication: ALLERGIC KERATITIS
     Dosage: (1 DROP PER EYE TWICE A DAY)

REACTIONS (3)
  - ALLERGIC KERATITIS [None]
  - APPLICATION SITE PAIN [None]
  - IRIDOCYCLITIS [None]
